FAERS Safety Report 18189994 (Version 3)
Quarter: 2021Q4

REPORT INFORMATION
  Report Type: Spontaneous
  Country: US (occurrence: US)
  Receive Date: 20200824
  Receipt Date: 20211231
  Transmission Date: 20220303
  Serious: Yes (Death)
  Sender: FDA-Public Use
  Company Number: US-ALLERGAN-2031361US

PATIENT
  Sex: Female

DRUGS (9)
  1. OXYBUTYNIN [Suspect]
     Active Substance: OXYBUTYNIN
     Indication: Pain
     Dosage: UNK
  2. MORPHINE SULFATE [Suspect]
     Active Substance: MORPHINE SULFATE
     Indication: Pain
  3. CARISOPRODOL [Suspect]
     Active Substance: CARISOPRODOL
     Indication: Pain
  4. GABAPENTIN [Suspect]
     Active Substance: GABAPENTIN
     Indication: Pain
  5. HYDROMORPHONE [Suspect]
     Active Substance: HYDROMORPHONE
     Indication: Pain
  6. VENLAFAXINE [Suspect]
     Active Substance: VENLAFAXINE HYDROCHLORIDE
     Indication: Pain
  7. HYDROCODONE [Suspect]
     Active Substance: HYDROCODONE
     Indication: Pain
     Dosage: UNK
  8. CODEINE [Suspect]
     Active Substance: CODEINE
     Indication: Pain
     Dosage: UNK
  9. TIZANIDINE [Suspect]
     Active Substance: TIZANIDINE
     Indication: Pain
     Dosage: UNK

REACTIONS (1)
  - Accidental overdose [Fatal]
